FAERS Safety Report 25976958 (Version 1)
Quarter: 2025Q4

REPORT INFORMATION
  Report Type: Spontaneous
  Country: EU (occurrence: EU)
  Receive Date: 20251030
  Receipt Date: 20251030
  Transmission Date: 20260117
  Serious: Yes (Life-Threatening, Hospitalization, Other)
  Sender: NOVARTIS
  Company Number: EU-002147023-NVSC2025SI166549

PATIENT
  Age: 78 Year
  Sex: Male
  Weight: 104 kg

DRUGS (8)
  1. ENTRESTO [Suspect]
     Active Substance: SACUBITRIL\VALSARTAN
     Indication: Product used for unknown indication
     Dosage: UNK
     Route: 065
     Dates: start: 202501
  2. XARELTO [Concomitant]
     Active Substance: RIVAROXABAN
     Indication: Product used for unknown indication
     Dosage: UNK
     Route: 065
  3. SYNJARDY [Concomitant]
     Active Substance: EMPAGLIFLOZIN\METFORMIN HYDROCHLORIDE
     Indication: Product used for unknown indication
     Dosage: UNK
     Route: 065
  4. METFORMIN HYDROCHLORIDE [Concomitant]
     Active Substance: METFORMIN HYDROCHLORIDE
     Indication: Product used for unknown indication
     Dosage: UNK
     Route: 065
  5. NEBIVOLOL [Concomitant]
     Active Substance: NEBIVOLOL
     Indication: Product used for unknown indication
     Dosage: UNK
     Route: 065
  6. KERENDIA [Concomitant]
     Active Substance: FINERENONE
     Indication: Product used for unknown indication
     Dosage: UNK
     Route: 065
  7. ZILTIVEKIMAB [Concomitant]
     Active Substance: ZILTIVEKIMAB
     Indication: Cardiac failure
     Dosage: UNK, QMO
     Route: 058
     Dates: start: 20240425, end: 20250123
  8. ZILTIVEKIMAB [Concomitant]
     Active Substance: ZILTIVEKIMAB
     Dosage: UNK, QMO
     Route: 058
     Dates: start: 20250328

REACTIONS (5)
  - Pneumonia pneumococcal [Recovered/Resolved]
  - Septic shock [Recovered/Resolved]
  - Haemoptysis [Recovered/Resolved]
  - Dyspnoea [Unknown]
  - Hypotension [Unknown]

NARRATIVE: CASE EVENT DATE: 20250129
